FAERS Safety Report 4618639-7 (Version None)
Quarter: 2005Q1

REPORT INFORMATION
  Report Type: 
  Country: None (occurrence: None)
  Receive Date: 20050324
  Receipt Date: 20050302
  Transmission Date: 20050727
  Serious: Yes (Other)
  Sender: FDA-Public Use
  Company Number: USA050392234

PATIENT
  Age: 84 Year
  Sex: Female

DRUGS (1)
  1. FORTEO [Suspect]
     Dates: start: 20040601

REACTIONS (4)
  - ANAEMIA [None]
  - HIP FRACTURE [None]
  - HYPONATRAEMIA [None]
  - MENTAL STATUS CHANGES [None]
